FAERS Safety Report 8820674 (Version 1)
Quarter: 2012Q4

REPORT INFORMATION
  Report Type: 
  Country: RU (occurrence: RU)
  Receive Date: 20121002
  Receipt Date: 20121002
  Transmission Date: 20130627
  Serious: Yes (Other)
  Sender: FDA-Public Use
  Company Number: RU-BAYER-2012-008999

PATIENT
  Sex: Female

DRUGS (5)
  1. QLAIRA [Suspect]
     Indication: CONTRACEPTION
     Dosage: UNK
     Route: 048
  2. QLAIRA [Suspect]
     Indication: HEADACHE
     Route: 048
  3. YARINA [Suspect]
     Indication: CONTRACEPTION
     Route: 048
  4. YARINA [Suspect]
     Indication: HEADACHE
  5. YAZ [Suspect]
     Route: 048

REACTIONS (5)
  - Cytomegalovirus infection [Recovered/Resolved]
  - Papilloma viral infection [Recovered/Resolved]
  - Cervical dysplasia [Recovered/Resolved]
  - Endometriosis [Not Recovered/Not Resolved]
  - Amenorrhoea [Recovered/Resolved]
